FAERS Safety Report 7111219-3 (Version None)
Quarter: 2010Q4

REPORT INFORMATION
  Report Type: 
  Country: None (occurrence: None)
  Receive Date: 20101118
  Receipt Date: 20091012
  Transmission Date: 20110411
  Serious: No
  Sender: FDA-Public Use
  Company Number: US-PFIZER INC-2009282463

PATIENT
  Sex: Male

DRUGS (2)
  1. ZYVOX [Suspect]
  2. VICODIN [Suspect]

REACTIONS (3)
  - DIZZINESS [None]
  - DYSPNOEA [None]
  - HEART RATE INCREASED [None]
